FAERS Safety Report 19047998 (Version 2)
Quarter: 2021Q1

REPORT INFORMATION
  Report Type: Spontaneous
  Country: BR (occurrence: BR)
  Receive Date: 20210324
  Receipt Date: 20210326
  Transmission Date: 20210420
  Serious: Yes (Hospitalization, Other)
  Sender: FDA-Public Use
  Company Number: BR-ABBVIE-21K-020-3820988-00

PATIENT
  Age: 43 Year
  Sex: Female
  Weight: 140 kg

DRUGS (3)
  1. XARELTO [Concomitant]
     Active Substance: RIVAROXABAN
     Indication: ANTICOAGULANT THERAPY
     Dosage: UNKNOWN?UNSPECIFIED DOSE
  2. HUMIRA [Suspect]
     Active Substance: ADALIMUMAB
     Indication: COLITIS ULCERATIVE
     Dosage: LOADING DOSE
     Route: 058
     Dates: start: 2016
  3. HUMIRA [Suspect]
     Active Substance: ADALIMUMAB
     Dosage: UNSPECIFIED DOSE
     Route: 058

REACTIONS (34)
  - Rectal tenesmus [Unknown]
  - Discomfort [Unknown]
  - Anxiety [Unknown]
  - Malaise [Recovered/Resolved]
  - Immunodeficiency [Recovered/Resolved]
  - Feeling of despair [Unknown]
  - Pulmonary embolism [Unknown]
  - Haemorrhage [Not Recovered/Not Resolved]
  - Pneumonia [Recovered/Resolved]
  - Gastric disorder [Unknown]
  - Colitis ulcerative [Recovered/Resolved]
  - Hospitalisation [Unknown]
  - Dyspepsia [Unknown]
  - Hospitalisation [Recovered/Resolved]
  - Pulmonary hypertension [Unknown]
  - Colitis ulcerative [Unknown]
  - Hospitalisation [Recovering/Resolving]
  - Stress [Unknown]
  - Gastrointestinal pain [Unknown]
  - Pain [Not Recovered/Not Resolved]
  - Thrombosis [Unknown]
  - Overweight [Unknown]
  - Chills [Unknown]
  - Anaemia [Unknown]
  - Malaise [Unknown]
  - Pain [Unknown]
  - Anal incontinence [Unknown]
  - Respiratory failure [Recovered/Resolved]
  - Pleural effusion [Unknown]
  - Abdominal distension [Not Recovered/Not Resolved]
  - Vomiting [Unknown]
  - Constipation [Unknown]
  - Unevaluable event [Not Recovered/Not Resolved]
  - Therapeutic product effect delayed [Unknown]

NARRATIVE: CASE EVENT DATE: 201809
